FAERS Safety Report 5996904-9 (Version None)
Quarter: 2008Q4

REPORT INFORMATION
  Report Type: 
  Country: None (occurrence: None)
  Receive Date: 20081212
  Receipt Date: 20081028
  Transmission Date: 20090506
  Serious: No
  Sender: FDA-Public Use
  Company Number: US-ABBOTT-08P-163-0484364-00

PATIENT
  Sex: Female

DRUGS (6)
  1. HUMIRA [Suspect]
     Indication: CROHN'S DISEASE
     Route: 058
     Dates: end: 20080901
  2. HUMIRA [Suspect]
     Route: 058
     Dates: start: 20080806, end: 20080806
  3. HUMIRA [Suspect]
     Route: 058
  4. PREDNISONE TAB [Concomitant]
     Indication: DRUG USE FOR UNKNOWN INDICATION
  5. AZATHIOPRINE [Concomitant]
     Indication: DRUG USE FOR UNKNOWN INDICATION
  6. AZATHIOPRINE [Concomitant]

REACTIONS (8)
  - ABASIA [None]
  - ABDOMINAL PAIN [None]
  - ARTHRALGIA [None]
  - ASTHENIA [None]
  - FATIGUE [None]
  - MYALGIA [None]
  - NAUSEA [None]
  - VOMITING [None]
